FAERS Safety Report 24326669 (Version 1)
Quarter: 2024Q3

REPORT INFORMATION
  Report Type: Spontaneous
  Country: JP (occurrence: None)
  Receive Date: 20240917
  Receipt Date: 20240917
  Transmission Date: 20241016
  Serious: Yes (Hospitalization)
  Sender: ASTRAZENECA
  Company Number: 2024A208668

PATIENT
  Age: 67 Year
  Sex: Female
  Weight: 52 kg

DRUGS (12)
  1. IMFINZI [Suspect]
     Active Substance: DURVALUMAB
     Indication: Hepatocellular carcinoma
     Route: 041
     Dates: start: 20240527, end: 20240628
  2. IMJUDO [Suspect]
     Active Substance: TREMELIMUMAB\TREMELIMUMAB-ACTL
     Indication: Hepatocellular carcinoma
     Dosage: 300.0MG UNKNOWN
     Route: 041
     Dates: start: 20240527, end: 20240628
  3. AMLODIPINE [Concomitant]
     Active Substance: AMLODIPINE BESYLATE
     Dosage: 5.0MG UNKNOWN
     Route: 048
  4. METHYLCOBALAMIN [Concomitant]
     Active Substance: METHYLCOBALAMIN
     Dosage: 500.0UG UNKNOWN
     Route: 048
     Dates: end: 20240723
  5. AZILSARTAN KAMEDOXOMIL [Concomitant]
     Active Substance: AZILSARTAN KAMEDOXOMIL
     Dosage: 20.0MG UNKNOWN
     Route: 048
     Dates: end: 20240723
  6. LANSOPRAZOLE [Concomitant]
     Active Substance: LANSOPRAZOLE
     Dosage: 15.0MG UNKNOWN
     Route: 048
  7. TRESIBA [Concomitant]
     Active Substance: INSULIN DEGLUDEC
     Dosage: 300.0DF UNKNOWN
     Route: 062
  8. LYUMJEV [Concomitant]
     Active Substance: INSULIN LISPRO-AABC
     Dosage: DOSE UNKNOWN
     Route: 062
     Dates: end: 20240723
  9. EDOXABAN TOSYLATE [Concomitant]
     Active Substance: EDOXABAN TOSYLATE
     Dosage: 15.0MG UNKNOWN
     Route: 048
     Dates: start: 20240628
  10. FUROSEMIDE [Concomitant]
     Active Substance: FUROSEMIDE
     Dosage: 40.0MG UNKNOWN
     Route: 048
     Dates: start: 20240628
  11. VEMLIDY [Concomitant]
     Active Substance: TENOFOVIR ALAFENAMIDE FUMARATE
     Dosage: 25.0MG UNKNOWN
     Route: 048
     Dates: start: 20240628
  12. SPIRONOLACTONE [Concomitant]
     Active Substance: SPIRONOLACTONE
     Dosage: 25.0MG UNKNOWN
     Route: 048
     Dates: start: 20240628

REACTIONS (5)
  - Dysphagia [Not Recovered/Not Resolved]
  - Dyslalia [Not Recovered/Not Resolved]
  - Performance status decreased [Unknown]
  - Immune-mediated neuropathy [Unknown]
  - Oedema [Unknown]

NARRATIVE: CASE EVENT DATE: 20240707
